FAERS Safety Report 8460634-4 (Version None)
Quarter: 2012Q2

REPORT INFORMATION
  Report Type: 
  Country: None (occurrence: None)
  Receive Date: 20120622
  Receipt Date: 20120611
  Transmission Date: 20120825
  Serious: No
  Sender: FDA-Public Use
  Company Number: US-ASTRAZENECA-2012SE38940

PATIENT
  Age: 45 Year
  Sex: Female
  Weight: 65.8 kg

DRUGS (16)
  1. SEROQUEL [Suspect]
     Indication: INSOMNIA
     Route: 048
  2. SEROQUEL [Suspect]
     Route: 048
  3. CLONAZEPAM [Concomitant]
  4. VALACYCLOVIR HYDROCHLORIDE [Concomitant]
  5. SEROQUEL [Suspect]
     Dosage: 200-300 MG AT NIGHT
     Route: 048
     Dates: start: 20120401
  6. CLONAZEPAM [Concomitant]
  7. L-METHYL SOLATE [Concomitant]
  8. SEROQUEL [Suspect]
     Indication: BIPOLAR DISORDER
     Route: 048
  9. SEROQUEL [Suspect]
     Route: 048
  10. VENLAFAXINE HCL [Concomitant]
  11. SEROQUEL [Suspect]
     Dosage: 200-300 MG AT NIGHT
     Route: 048
     Dates: start: 20120401
  12. SEROQUEL [Suspect]
     Route: 048
  13. SEROQUEL [Suspect]
     Dosage: 200-300 MG AT NIGHT
     Route: 048
     Dates: start: 20120401
  14. CYMBALTA [Concomitant]
  15. SEROQUEL [Suspect]
     Indication: AFFECTIVE DISORDER
     Route: 048
  16. AMPHETAMINE AND DEXTROAMPHETAMINE SALTS [Concomitant]

REACTIONS (6)
  - IRRITABILITY [None]
  - DRUG DOSE OMISSION [None]
  - DRUG INEFFECTIVE [None]
  - SOMNOLENCE [None]
  - INSOMNIA [None]
  - BIPOLAR I DISORDER [None]
